FAERS Safety Report 4417927-7 (Version None)
Quarter: 2004Q3

REPORT INFORMATION
  Report Type: 
  Country: None (occurrence: None)
  Receive Date: 20040803
  Receipt Date: 20040719
  Transmission Date: 20050211
  Serious: No
  Sender: FDA-Public Use
  Company Number: 2004GB01686

PATIENT
  Age: 55 Year
  Sex: Female
  Weight: 64 kg

DRUGS (1)
  1. SYMBICORT [Suspect]
     Indication: ASTHMA
     Dosage: 2 PUFF BID IH
     Route: 055
     Dates: start: 20040615, end: 20040626

REACTIONS (4)
  - DYSPNOEA [None]
  - HEADACHE [None]
  - MALAISE [None]
  - THROAT TIGHTNESS [None]
